FAERS Safety Report 19878916 (Version 1)
Quarter: 2021Q3

REPORT INFORMATION
  Report Type: Spontaneous
  Country: JP (occurrence: JP)
  Receive Date: 20210924
  Receipt Date: 20210924
  Transmission Date: 20211014
  Serious: Yes (Death, Hospitalization, Other)
  Sender: FDA-Public Use
  Company Number: JP-BRISTOL-MYERS SQUIBB COMPANY-BMS-2021-095138

PATIENT
  Age: 46 Year
  Sex: Male
  Weight: 66.4 kg

DRUGS (4)
  1. CRIZOTINIB [Suspect]
     Active Substance: CRIZOTINIB
     Indication: LUNG NEOPLASM MALIGNANT
     Dosage: 250 MILLIGRAM, BID
     Dates: start: 20210108, end: 20210126
  2. LOXOPROFEN [Concomitant]
     Active Substance: LOXOPROFEN
     Indication: CANCER PAIN
     Dosage: UNK
     Route: 048
     Dates: start: 20201028, end: 20210126
  3. OXINORM [OXYCODONE HYDROCHLORIDE] [Concomitant]
     Active Substance: OXYCODONE HYDROCHLORIDE
     Indication: CANCER PAIN
     Dosage: UNK
     Route: 048
     Dates: start: 20201112, end: 20210126
  4. ELIQUIS [Suspect]
     Active Substance: APIXABAN
     Indication: HYPERTENSION
     Dosage: UNK
     Route: 048
     Dates: start: 20201120, end: 20210126

REACTIONS (5)
  - Pneumonitis [Unknown]
  - Dyspnoea exertional [Unknown]
  - Anaemia [Unknown]
  - Pleural effusion [Unknown]
  - Disease progression [Fatal]

NARRATIVE: CASE EVENT DATE: 20210125
